FAERS Safety Report 25146780 (Version 1)
Quarter: 2025Q2

REPORT INFORMATION
  Report Type: Spontaneous
  Country: ES (occurrence: ES)
  Receive Date: 20250401
  Receipt Date: 20250401
  Transmission Date: 20250717
  Serious: Yes (Other)
  Sender: NOVARTIS
  Company Number: ES-002147023-NVSC2025ES052832

PATIENT
  Sex: Female

DRUGS (6)
  1. DABRAFENIB [Suspect]
     Active Substance: DABRAFENIB
     Indication: Product used for unknown indication
     Dosage: 75 MG, Q12H
     Route: 065
     Dates: start: 2024, end: 2024
  2. DABRAFENIB [Suspect]
     Active Substance: DABRAFENIB
     Dosage: 50 MG, Q12H (WITHOUT RECURRENCE OF THE SKIN CONDITION)
     Route: 065
     Dates: start: 2024
  3. DABRAFENIB [Suspect]
     Active Substance: DABRAFENIB
     Dosage: 30 MG, Q12H
     Route: 065
  4. TRAMETINIB [Suspect]
     Active Substance: TRAMETINIB
     Indication: Product used for unknown indication
     Dosage: 1 MG, Q24H
     Route: 065
     Dates: start: 2024, end: 2024
  5. TRAMETINIB [Suspect]
     Active Substance: TRAMETINIB
     Dosage: 0.5 MG, Q12H (WITHOUT RECURRENCE OF THE SKIN CONDITION)
     Route: 065
     Dates: start: 2024
  6. HYDROCORTISONE [Concomitant]
     Active Substance: HYDROCORTISONE
     Indication: Hypopituitarism
     Route: 065

REACTIONS (6)
  - Toxic skin eruption [Recovered/Resolved]
  - Erythema multiforme [Recovered/Resolved]
  - Pyrexia [Recovered/Resolved]
  - Arthralgia [Recovered/Resolved]
  - Myalgia [Recovered/Resolved]
  - Diarrhoea [Unknown]

NARRATIVE: CASE EVENT DATE: 20240101
